FAERS Safety Report 22373494 (Version 1)
Quarter: 2023Q2

REPORT INFORMATION
  Report Type: Other
  Country: None (occurrence: US)
  Receive Date: 20230526
  Receipt Date: 20230526
  Transmission Date: 20230722
  Serious: Yes (Death)
  Sender: FDA-Public Use
  Company Number: US-B.Braun Medical Inc.-2142050

PATIENT
  Age: 39 Year
  Sex: Female

DRUGS (1)
  1. GLYCINE [Suspect]
     Active Substance: GLYCINE
     Indication: Abdominal distension

REACTIONS (3)
  - Pulmonary oedema [Fatal]
  - Hyponatraemia [Fatal]
  - Brain oedema [Fatal]
